FAERS Safety Report 15320338 (Version 2)
Quarter: 2018Q3

REPORT INFORMATION
  Report Type: Spontaneous
  Country: US (occurrence: US)
  Receive Date: 20180827
  Receipt Date: 20180928
  Transmission Date: 20181010
  Serious: No
  Sender: FDA-Public Use
  Company Number: PHEH2018US034064

PATIENT
  Sex: Female

DRUGS (1)
  1. RIVASTIGMINE. [Suspect]
     Active Substance: RIVASTIGMINE
     Indication: PRODUCT USED FOR UNKNOWN INDICATION
     Dosage: 9.5 MG, UNK
     Route: 062

REACTIONS (2)
  - Erythema [Unknown]
  - Product adhesion issue [Unknown]
